FAERS Safety Report 7210658-X (Version None)
Quarter: 2011Q1

REPORT INFORMATION
  Report Type: 
  Country: None (occurrence: None)
  Receive Date: 20110105
  Receipt Date: 20101224
  Transmission Date: 20110831
  Serious: No
  Sender: FDA-Public Use
  Company Number: US-PFIZER INC-2010179067

PATIENT
  Sex: Male
  Weight: 101 kg

DRUGS (14)
  1. VITAMIN D3 [Concomitant]
     Indication: DIABETES MELLITUS
     Dosage: 1000 IU, 2X/DAY
     Route: 048
  2. GLIMEPIRIDE [Concomitant]
     Indication: DIABETES MELLITUS
     Dosage: 1 MG, 1X/DAY
     Route: 048
  3. ACETAMINOPHEN [Concomitant]
     Indication: PAIN
     Dosage: 1000 MG, AS NEEDED
     Route: 048
  4. ACTOS [Concomitant]
     Indication: DIABETES MELLITUS
     Dosage: 45 MG, 1X/DAY
     Route: 048
  5. FISH OIL [Concomitant]
     Dosage: 100 MG, 2X/DAY
     Route: 048
  6. VITAMIN B COMPLEX [Concomitant]
     Indication: DIABETES MELLITUS
     Dosage: UNK
     Route: 048
  7. LIPITOR [Suspect]
     Dosage: 80 MG, 1X/DAY
     Route: 048
  8. BYETTA [Concomitant]
     Indication: DIABETES MELLITUS
     Dosage: 10 MG, 1X/DAY
     Route: 048
  9. ENALAPRIL [Concomitant]
     Indication: HYPERTENSION
     Dosage: 2.5 MG, 1X/DAY
     Route: 048
  10. ACETYLSALICYLIC ACID [Concomitant]
     Indication: CARDIAC DISORDER
     Dosage: 325 MG, 1X/DAY
     Route: 048
  11. LIPITOR [Suspect]
     Indication: BLOOD CHOLESTEROL INCREASED
     Dosage: 40 MG DAILY
     Route: 048
  12. NIASPAN [Concomitant]
     Indication: DIABETES MELLITUS
     Dosage: 500 MG, 1X/DAY
     Route: 048
  13. FENOFIBRATE [Concomitant]
     Indication: BLOOD TRIGLYCERIDES ABNORMAL
     Dosage: 654 MG, 1X/DAY
     Route: 048
  14. VITAMIN B COMPLEX [Concomitant]
     Indication: RENAL DISORDER

REACTIONS (4)
  - FLATULENCE [None]
  - ABDOMINAL DISTENSION [None]
  - CONSTIPATION [None]
  - ABDOMINAL DISCOMFORT [None]
